FAERS Safety Report 5900245-5 (Version None)
Quarter: 2008Q3

REPORT INFORMATION
  Report Type: 
  Country: None (occurrence: None)
  Receive Date: 20080926
  Receipt Date: 20080923
  Transmission Date: 20090109
  Serious: Yes (Other)
  Sender: FDA-Public Use
  Company Number: US-BRISTOL-MYERS SQUIBB COMPANY-14345961

PATIENT
  Sex: Male

DRUGS (2)
  1. ABILIFY [Suspect]
  2. ABILIFY [Suspect]
     Route: 048

REACTIONS (5)
  - BLINDNESS TRANSIENT [None]
  - COMA [None]
  - CONVULSION [None]
  - LIP AND/OR ORAL CAVITY CANCER [None]
  - LOSS OF CONSCIOUSNESS [None]
